FAERS Safety Report 9576367 (Version 1)
Quarter: 2013Q4

REPORT INFORMATION
  Report Type: Spontaneous
  Country: US (occurrence: US)
  Receive Date: 20131001
  Receipt Date: 20131001
  Transmission Date: 20140711
  Serious: No
  Sender: FDA-Public Use
  Company Number: US-AMGEN-USASP2013002768

PATIENT
  Age: 81 Year
  Sex: Female
  Weight: 58.96 kg

DRUGS (11)
  1. ENBREL [Suspect]
     Indication: RHEUMATOID ARTHRITIS
     Dosage: 50 MG, QWK
     Route: 058
  2. METHOTREXATE [Concomitant]
     Dosage: 2.5 MG, UNK
  3. PREDNISONE [Concomitant]
     Dosage: 2.5 MG, UNK
  4. SYNTHROID [Concomitant]
     Dosage: 75 MUG, UNK
  5. ADVIL                              /00109201/ [Concomitant]
     Dosage: 200 MG, UNK
  6. MAGNESIUM [Concomitant]
     Dosage: 250 MG, UNK
  7. VITAMIN D3 [Concomitant]
     Dosage: 500 UNIT, UNK
  8. CALCIUM 500+D [Concomitant]
     Dosage: UNK
  9. OMEGA 3                            /01334101/ [Concomitant]
     Dosage: UNK
  10. FOLIC ACID [Concomitant]
     Dosage: UNK
  11. VITAMIN C                          /00008001/ [Concomitant]
     Dosage: 100 MG, CHW

REACTIONS (1)
  - Injection site bruising [Unknown]
